FAERS Safety Report 6988543-8 (Version None)
Quarter: 2010Q3

REPORT INFORMATION
  Report Type: 
  Country: None (occurrence: None)
  Receive Date: 20100916
  Receipt Date: 20100907
  Transmission Date: 20110219
  Serious: Yes (Hospitalization, Other)
  Sender: FDA-Public Use
  Company Number: GR-PFIZER INC-2010113115

PATIENT
  Age: 28 Year
  Sex: Female
  Weight: 49 kg

DRUGS (4)
  1. FARMORUBICIN [Suspect]
     Indication: BREAST CANCER
     Dosage: 160 MG, EVERY 2 WEEKS
     Route: 042
     Dates: start: 20060630, end: 20060728
  2. NEULASTA [Concomitant]
     Indication: NEUTROPENIA
     Dosage: 10 MG/D2, WEEKLY
     Dates: start: 20060630, end: 20061020
  3. ZOFRON [Concomitant]
     Indication: PREMEDICATION
     Dosage: 8 MG, UNK
     Route: 042
     Dates: start: 20060630, end: 20061020
  4. PRIMPERAN TAB [Concomitant]
     Indication: PREMEDICATION
     Dosage: 10 MG, UNK
     Route: 042
     Dates: start: 20060630, end: 20061020

REACTIONS (2)
  - FEBRILE NEUTROPENIA [None]
  - TONSILLITIS [None]
